FAERS Safety Report 7478023-8 (Version None)
Quarter: 2011Q2

REPORT INFORMATION
  Report Type: 
  Country: None (occurrence: None)
  Receive Date: 20110513
  Receipt Date: 20110506
  Transmission Date: 20111010
  Serious: Yes (Other)
  Sender: FDA-Public Use
  Company Number: ES-SANOFI-AVENTIS-2011SA017995

PATIENT
  Age: 66 Year

DRUGS (5)
  1. ASPIRIN [Concomitant]
     Dosage: DOSE:1 UNIT(S)
     Route: 065
  2. ATORVASTATIN [Concomitant]
     Route: 065
  3. PANTOPRAZOLE [Concomitant]
     Route: 065
  4. DINISOR [Concomitant]
     Dosage: DOSE:1 UNIT(S)
     Route: 065
  5. MULTAQ [Suspect]
     Route: 048
     Dates: start: 20110101, end: 20110201

REACTIONS (2)
  - MIXED LIVER INJURY [None]
  - HEPATITIS [None]
